FAERS Safety Report 4322096-8 (Version None)
Quarter: 2004Q1

REPORT INFORMATION
  Report Type: 
  Country: None (occurrence: None)
  Receive Date: 20040323
  Receipt Date: 20040303
  Transmission Date: 20041129
  Serious: Yes (Death)
  Sender: FDA-Public Use
  Company Number: FI-GLAXOSMITHKLINE-B0325677A

PATIENT

DRUGS (1)
  1. LAMICTAL [Suspect]
     Route: 050

REACTIONS (2)
  - DRUG EXPOSURE VIA BREAST MILK [None]
  - SUDDEN INFANT DEATH SYNDROME [None]
